FAERS Safety Report 21394523 (Version 1)
Quarter: 2022Q3

REPORT INFORMATION
  Report Type: Report from Study
  Country: US (occurrence: US)
  Receive Date: 20220930
  Receipt Date: 20220930
  Transmission Date: 20221026
  Serious: Yes (Other)
  Sender: FDA-Public Use
  Company Number: US-AMGEN-USASL2022121787

PATIENT
  Age: 67 Year
  Sex: Female

DRUGS (6)
  1. ENBREL [Suspect]
     Active Substance: ETANERCEPT
     Indication: Rheumatoid arthritis
     Dosage: 50 MILLIGRAM, QWK
     Route: 065
     Dates: start: 1998
  2. ENBREL [Suspect]
     Active Substance: ETANERCEPT
     Dosage: 50 MILLIGRAM, QWK
     Route: 065
  3. ENBREL [Suspect]
     Active Substance: ETANERCEPT
     Dosage: 50 MILLIGRAM, QWK
     Route: 065
     Dates: start: 202201, end: 202204
  4. ENBREL [Suspect]
     Active Substance: ETANERCEPT
     Dosage: 50 MILLIGRAM, QWK
     Route: 065
     Dates: start: 2022
  5. AZATHIOPRINE [Suspect]
     Active Substance: AZATHIOPRINE
     Indication: Rheumatoid arthritis
     Dosage: UNK
     Route: 065
     Dates: start: 202112, end: 2022
  6. PREDNISONE [Concomitant]
     Active Substance: PREDNISONE

REACTIONS (13)
  - Fungal pharyngitis [Unknown]
  - Fungal oesophagitis [Unknown]
  - Pulmonary pain [Unknown]
  - Musculoskeletal pain [Unknown]
  - Fatigue [Unknown]
  - Pain [Unknown]
  - Ear infection [Unknown]
  - Headache [Unknown]
  - Sensitivity to weather change [Unknown]
  - Hypertension [Unknown]
  - Weight decreased [Unknown]
  - Asthma [Unknown]
  - Illness [Unknown]

NARRATIVE: CASE EVENT DATE: 20220101
